FAERS Safety Report 10096012 (Version 2)
Quarter: 2014Q4

REPORT INFORMATION
  Report Type: Spontaneous
  Country: US (occurrence: US)
  Receive Date: 20140422
  Receipt Date: 20141031
  Transmission Date: 20150528
  Serious: Yes (Hospitalization)
  Sender: FDA-Public Use
  Company Number: US-BAYER-2014-056792

PATIENT
  Age: 33 Year
  Sex: Female
  Weight: 63.49 kg

DRUGS (11)
  1. YASMIN [Suspect]
     Active Substance: DROSPIRENONE\ETHINYL ESTRADIOL
  2. AMOXICILLIN. [Concomitant]
     Active Substance: AMOXICILLIN
  3. FIORICET [Concomitant]
     Active Substance: ACETAMINOPHEN\BUTALBITAL\CAFFEINE
  4. FLOXIN [OFLOXACIN HYDROCHLORIDE] [Concomitant]
     Indication: EAR INFECTION
  5. PROZAC [Concomitant]
     Active Substance: FLUOXETINE HYDROCHLORIDE
     Dosage: 20 MG, UNK
     Route: 048
     Dates: start: 20041213
  6. DECADRON [Concomitant]
     Active Substance: DEXAMETHASONE
     Dosage: EVERY 6 HOURS
  7. PHENERGAN [Concomitant]
     Active Substance: PROMETHAZINE HYDROCHLORIDE
     Indication: NAUSEA
  8. AUGMENTIN [Concomitant]
     Active Substance: AMOXICILLIN\CLAVULANATE POTASSIUM
     Indication: SINUSITIS
  9. AVELOX [Concomitant]
     Active Substance: MOXIFLOXACIN HYDROCHLORIDE
  10. PHENERGAN [Concomitant]
     Active Substance: PROMETHAZINE HYDROCHLORIDE
     Indication: VOMITING
  11. MORPHINE [Concomitant]
     Active Substance: MORPHINE
     Indication: PAIN

REACTIONS (3)
  - Jugular vein thrombosis [None]
  - Transverse sinus thrombosis [None]
  - Intracranial venous sinus thrombosis [None]

NARRATIVE: CASE EVENT DATE: 20041229
